FAERS Safety Report 5623444-9 (Version None)
Quarter: 2008Q1

REPORT INFORMATION
  Report Type: 
  Country: None (occurrence: None)
  Receive Date: 20080212
  Receipt Date: 20080208
  Transmission Date: 20080703
  Serious: Yes (Other)
  Sender: FDA-Public Use
  Company Number: US-BRISTOL-MYERS SQUIBB COMPANY-14069991

PATIENT
  Age: 11 Year
  Sex: Male
  Weight: 91 kg

DRUGS (4)
  1. CETUXIMAB [Suspect]
     Indication: COLON CANCER STAGE III
     Dosage: START DATE-15DEC06;CYCLES TODATE-12;DELAYED FOR 7 DAYS
     Route: 042
     Dates: start: 20070302, end: 20070302
  2. FLUOROURACIL [Suspect]
     Indication: COLON CANCER STAGE III
     Dosage: START DATE -15DEC2006;CYCLES TODATE - 12;
     Route: 042
     Dates: start: 20070302, end: 20070302
  3. LEUCOVORIN CALCIUM [Suspect]
     Indication: COLON CANCER STAGE III
     Dosage: START DATE-15DEC06;CYCLES TODATE-12;DELAYED - 7 DAYS
     Route: 042
     Dates: start: 20070302, end: 20070302
  4. OXALIPLATIN [Suspect]
     Indication: COLON CANCER STAGE III
     Dosage: THERAPY START-15DEC2006;CYCLES TODATE-12
     Route: 042
     Dates: start: 20070302, end: 20070302

REACTIONS (1)
  - PLEURAL EFFUSION [None]
